FAERS Safety Report 5792111-3 (Version None)
Quarter: 2008Q2

REPORT INFORMATION
  Report Type: 
  Country: None (occurrence: None)
  Receive Date: 20080626
  Receipt Date: 20080303
  Transmission Date: 20081010
  Serious: No
  Sender: FDA-Public Use
  Company Number: US-ASTRAZENECA-2008UW04251

PATIENT
  Age: 77 Year
  Sex: Female

DRUGS (6)
  1. PULMICORT FLEXHALER [Suspect]
     Indication: ASTHMA
     Dosage: 1 OR 2 DOSES TWICE A DAY
     Route: 055
  2. PLAVIX [Concomitant]
  3. SIMVASTATIN [Concomitant]
  4. PROCARDIA [Concomitant]
  5. POTASSIUM CHLORIDE [Concomitant]
  6. FUROSEMIDE [Concomitant]

REACTIONS (2)
  - BACK PAIN [None]
  - SKIN DISCOLOURATION [None]
